FAERS Safety Report 19599374 (Version 1)
Quarter: 2021Q3

REPORT INFORMATION
  Report Type: Spontaneous
  Country: US (occurrence: US)
  Receive Date: 20210722
  Receipt Date: 20210722
  Transmission Date: 20211014
  Serious: Yes (Hospitalization)
  Sender: FDA-Public Use
  Company Number: None

PATIENT
  Age: 63 Year
  Sex: Female

DRUGS (32)
  1. COSENTYX [Suspect]
     Active Substance: SECUKINUMAB
     Indication: PSORIATIC ARTHROPATHY
     Dosage: ?          OTHER FREQUENCY:QWK X 5WK ;?
     Route: 058
  2. AFLRIA QUAD [Concomitant]
  3. FLUTICASONE SPR [Concomitant]
  4. PNEUMOVAX 23 [Concomitant]
     Active Substance: PNEUMOCOCCAL VACCINE, POLYVALENT 23
  5. ARAVA [Concomitant]
     Active Substance: LEFLUNOMIDE
  6. AZELASTINE SPR [Concomitant]
  7. CELECOXIB. [Concomitant]
     Active Substance: CELECOXIB
  8. DOXYCYCL HYC [Concomitant]
     Active Substance: DOXYCYCLINE HYCLATE
  9. MECLIZINE [Concomitant]
     Active Substance: MECLIZINE HYDROCHLORIDE
  10. ATORVASTATIN [Concomitant]
     Active Substance: ATORVASTATIN
  11. CEFUROXIME. [Concomitant]
     Active Substance: CEFUROXIME
  12. PREDNISONE. [Concomitant]
     Active Substance: PREDNISONE
  13. ROBIT CGH DM [Concomitant]
  14. ROSUVASTATIN. [Concomitant]
     Active Substance: ROSUVASTATIN
  15. PROLIA [Suspect]
     Active Substance: DENOSUMAB
     Indication: SENILE OSTEOPOROSIS
     Dosage: ?          OTHER FREQUENCY:Q6M;?
     Route: 058
     Dates: start: 20191218
  16. APAP/CODEINE [Concomitant]
     Active Substance: ACETAMINOPHEN\CODEINE PHOSPHATE
  17. FOLIC ACID. [Concomitant]
     Active Substance: FOLIC ACID
  18. IPRATROPIUM/SOL [Concomitant]
  19. BENZONATATE. [Concomitant]
     Active Substance: BENZONATATE
  20. CEFDINIR. [Concomitant]
     Active Substance: CEFDINIR
  21. ALBUTER [Concomitant]
  22. METFORMIN [Concomitant]
     Active Substance: METFORMIN HYDROCHLORIDE
  23. PIOGUTAZONE [Concomitant]
  24. JARDIANCE [Concomitant]
     Active Substance: EMPAGLIFLOZIN
  25. LEVOFLOXACIN. [Concomitant]
     Active Substance: LEVOFLOXACIN
  26. MONTELUKAST [Concomitant]
     Active Substance: MONTELUKAST SODIUM
  27. OMEPRAZOLE. [Concomitant]
     Active Substance: OMEPRAZOLE
  28. STRESS B COM VIT [Concomitant]
  29. AMITRIPTYLIN [Concomitant]
     Active Substance: AMITRIPTYLINE
  30. BUDES/FORMOT [Concomitant]
  31. OXISTAT CRE [Concomitant]
  32. SYMBICORT [Concomitant]
     Active Substance: BUDESONIDE\FORMOTEROL FUMARATE DIHYDRATE

REACTIONS (2)
  - Therapy interrupted [None]
  - Pyrexia [None]

NARRATIVE: CASE EVENT DATE: 20210416
